FAERS Safety Report 8991036 (Version 1)
Quarter: 2012Q4

REPORT INFORMATION
  Report Type: Spontaneous
  Country: IN (occurrence: None)
  Receive Date: 20121220
  Receipt Date: 20121220
  Transmission Date: 20130627
  Serious: Yes (Death)
  Sender: FDA-Public Use
  Company Number: 2012CP000158

PATIENT
  Age: 75 Year
  Sex: Male

DRUGS (5)
  1. PERFALGAN [Suspect]
     Route: 042
  2. ACETYLSALICYLIC ACID [Suspect]
  3. ENOXAPARIN [Suspect]
     Dosage: 40 MG;
  4. TRAMADOL [Concomitant]
  5. INSULIN [Concomitant]

REACTIONS (1)
  - Gastrointestinal haemorrhage [None]
